FAERS Safety Report 20057195 (Version 1)
Quarter: 2021Q4

REPORT INFORMATION
  Report Type: Spontaneous
  Country: PT (occurrence: PT)
  Receive Date: 20211111
  Receipt Date: 20211111
  Transmission Date: 20220303
  Serious: Yes (Other)
  Sender: FDA-Public Use
  Company Number: PT-MYLANLABS-2021M1079566

PATIENT
  Age: 60 Year

DRUGS (8)
  1. TICAGRELOR [Suspect]
     Active Substance: TICAGRELOR
     Indication: Product used for unknown indication
     Dosage: 90 MILLIGRAM, BID
  2. ASPIRIN                            /00002701/ [Concomitant]
     Dosage: 100 MILLIGRAM, QD
  3. CARVEDILOL [Concomitant]
     Active Substance: CARVEDILOL
     Dosage: 6.25 MILLIGRAM, BID
  4. METFORMIN\SITAGLIPTIN [Concomitant]
     Active Substance: METFORMIN\SITAGLIPTIN
     Dosage: 1 DOSAGE FORM, BID
  5. VALSARTAN/AMLODIPINE/HCT SANDOZ [Concomitant]
     Dosage: 1 DOSAGE FORM, QD
  6. EZETIMIBE [Concomitant]
     Active Substance: EZETIMIBE
     Dosage: 10 MILLIGRAM, QD
  7. FENOFIBRATE W/PRAVASTATIN [Concomitant]
     Dosage: 1 DOSAGE FORM, QD
  8. GLIMEPIRIDE [Concomitant]
     Active Substance: GLIMEPIRIDE
     Dosage: 3 MILLIGRAM, QD

REACTIONS (6)
  - Arrhythmia [Unknown]
  - Dyspnoea [Recovered/Resolved]
  - Agitation [Unknown]
  - Flushing [Unknown]
  - Chest pain [Unknown]
  - Extrasystoles [Unknown]
